FAERS Safety Report 18271175 (Version 1)
Quarter: 2020Q3

REPORT INFORMATION
  Report Type: Spontaneous
  Country: US (occurrence: US)
  Receive Date: 20200916
  Receipt Date: 20200916
  Transmission Date: 20201103
  Serious: No
  Sender: FDA-Public Use
  Company Number: US-ITALFARMACO SPA-2090775

PATIENT
  Age: 64 Year
  Sex: Male

DRUGS (12)
  1. TIGLUTIK [Suspect]
     Active Substance: RILUZOLE
     Route: 048
     Dates: start: 20200324
  2. SODIUM PHENYLBUTYRATE. [Concomitant]
     Active Substance: SODIUM PHENYLBUTYRATE
  3. ALPRAZOLAM. [Concomitant]
     Active Substance: ALPRAZOLAM
  4. BACLOFEN. [Concomitant]
     Active Substance: BACLOFEN
  5. TREMFYA [Concomitant]
     Active Substance: GUSELKUMAB
  6. LISINOPRIL AND HYDROCHLOROTHIAZIDE [Concomitant]
     Active Substance: HYDROCHLOROTHIAZIDE\LISINOPRIL
  7. PROBIOTICS NOS [Concomitant]
     Active Substance: PROBIOTICS NOS
  8. URSODIOL. [Concomitant]
     Active Substance: URSODIOL
  9. CIALIS [Concomitant]
     Active Substance: TADALAFIL
  10. MAGNESIUM CHLORIDE. [Concomitant]
     Active Substance: MAGNESIUM CHLORIDE
  11. CANNABIDIOL [Concomitant]
     Active Substance: CANNABIDIOL
  12. METHYLCOBALAMIN. [Concomitant]
     Active Substance: METHYLCOBALAMIN

REACTIONS (1)
  - Eating disorder [Not Recovered/Not Resolved]
